FAERS Safety Report 4886882-8 (Version None)
Quarter: 2006Q1

REPORT INFORMATION
  Report Type: 
  Country: None (occurrence: None)
  Receive Date: 20060119
  Receipt Date: 20060112
  Transmission Date: 20060701
  Serious: Yes (Hospitalization)
  Sender: FDA-Public Use
  Company Number: 2005158124

PATIENT
  Age: 19 Year
  Sex: Female

DRUGS (4)
  1. CELEBREX [Suspect]
     Indication: PAIN
     Dosage: 1200 MG (200 MG, 3 IN 1 D), ORAL
     Route: 048
     Dates: start: 20050101, end: 20050901
  2. CELEBREX [Suspect]
     Indication: WHIPLASH INJURY
     Dosage: 1200 MG (200 MG, 3 IN 1 D), ORAL
     Route: 048
     Dates: start: 20050101, end: 20050901
  3. MEDROXYPROGESTERONE ACETATE [Suspect]
     Indication: CONTRACEPTION
     Dosage: INTRAMUSCULAR
     Route: 030
     Dates: start: 20050819, end: 20050819
  4. ANALGESICS (ANALGESICS) [Concomitant]

REACTIONS (7)
  - ENDOMETRIAL HYPERPLASIA [None]
  - ENDOMETRIAL HYPOPLASIA [None]
  - METRORRHAGIA [None]
  - THERAPY NON-RESPONDER [None]
  - UTERINE ATONY [None]
  - UTERINE HAEMORRHAGE [None]
  - UTERINE POLYP [None]
